FAERS Safety Report 9265554 (Version 3)
Quarter: 2014Q3

REPORT INFORMATION
  Report Type: Spontaneous
  Country: US (occurrence: US)
  Receive Date: 20130501
  Receipt Date: 20140804
  Transmission Date: 20150326
  Serious: Yes (Hospitalization, Other)
  Sender: FDA-Public Use
  Company Number: US-009507513-1304USA017595

PATIENT
  Sex: Female
  Weight: 63.49 kg

DRUGS (2)
  1. NUVARING [Suspect]
     Active Substance: ETHINYL ESTRADIOL\ETONOGESTREL
     Indication: MENORRHAGIA
     Dosage: 0.12-0.015 MG/24 HR, 1 RING 3 WEEKS IN, 1 WEEK OUT
     Route: 067
     Dates: start: 20100205, end: 20100510
  2. NUVARING [Suspect]
     Active Substance: ETHINYL ESTRADIOL\ETONOGESTREL
     Indication: PREMENSTRUAL SYNDROME

REACTIONS (14)
  - Insomnia [Unknown]
  - Hypokalaemia [Unknown]
  - Pneumonia [Unknown]
  - Off label use [Unknown]
  - Oedema peripheral [Unknown]
  - Haemoptysis [Unknown]
  - Weight increased [Unknown]
  - Fibrin D dimer increased [Unknown]
  - Pulmonary embolism [Unknown]
  - Anticoagulation drug level below therapeutic [Unknown]
  - Pleural effusion [Unknown]
  - Hypertension [Unknown]
  - Headache [Unknown]
  - Arthralgia [Unknown]

NARRATIVE: CASE EVENT DATE: 20100205
